FAERS Safety Report 4768275-7 (Version None)
Quarter: 2005Q3

REPORT INFORMATION
  Report Type: 
  Country: None (occurrence: None)
  Receive Date: 20050906
  Receipt Date: 20050628
  Transmission Date: 20060218
  Serious: No
  Sender: FDA-Public Use
  Company Number: 2005-BP-10950BP

PATIENT
  Age: 84 Year
  Sex: Male
  Weight: 75.8 kg

DRUGS (7)
  1. SPIRIVA [Suspect]
     Indication: CHRONIC OBSTRUCTIVE PULMONARY DISEASE
     Dosage: 18 MCG (18 MCG, QD), IH
     Route: 055
     Dates: start: 20040216, end: 20050614
  2. ALTACE [Concomitant]
  3. COUMADIN [Concomitant]
  4. PRAVACHOL [Concomitant]
  5. PROCARDIA [Concomitant]
  6. MIACALCIN [Concomitant]
  7. PRILOSEC [Concomitant]

REACTIONS (2)
  - AGEUSIA [None]
  - DRY MOUTH [None]
